FAERS Safety Report 6716757-0 (Version None)
Quarter: 2010Q2

REPORT INFORMATION
  Report Type: 
  Country: None (occurrence: None)
  Receive Date: 20100510
  Receipt Date: 20100506
  Transmission Date: 20101027
  Serious: No
  Sender: FDA-Public Use
  Company Number: US-BIOGENIDEC-2010BI015030

PATIENT
  Age: 50 Year
  Sex: Female

DRUGS (2)
  1. AVONEX [Suspect]
     Indication: MULTIPLE SCLEROSIS
     Route: 030
     Dates: start: 20020901
  2. BACLOFEN [Concomitant]
     Indication: MUSCLE SPASMS

REACTIONS (4)
  - FEAR [None]
  - FEELING HOT [None]
  - MUSCLE SPASMS [None]
  - PSYCHIATRIC SYMPTOM [None]
